FAERS Safety Report 15418284 (Version 1)
Quarter: 2018Q3

REPORT INFORMATION
  Report Type: Spontaneous
  Country: JP (occurrence: JP)
  Receive Date: 20180924
  Receipt Date: 20180924
  Transmission Date: 20181010
  Serious: Yes (Life-Threatening, Other)
  Sender: FDA-Public Use
  Company Number: JP-009507513-1806JPN001150J

PATIENT
  Age: 69 Year
  Sex: Male
  Weight: 70 kg

DRUGS (3)
  1. ESLAX INTRAVENOUS 25MG/2.5ML [Suspect]
     Active Substance: ROCURONIUM BROMIDE
     Indication: HYPOTONIA
     Dosage: 40 MG, UNK
     Route: 042
     Dates: start: 20180521
  2. FENTANYL. [Concomitant]
     Active Substance: FENTANYL
     Indication: ANALGESIC INTERVENTION SUPPORTIVE THERAPY
     Dosage: 100 MG, UNK
     Route: 042
     Dates: start: 20180521
  3. PROPOFOL. [Concomitant]
     Active Substance: PROPOFOL
     Indication: GENERAL ANAESTHESIA
     Dosage: 100 MG, UNK
     Route: 042
     Dates: start: 20180521

REACTIONS (7)
  - Altered state of consciousness [Recovering/Resolving]
  - Anaphylactic reaction [Unknown]
  - Blood pressure decreased [Recovering/Resolving]
  - Arrhythmia [Recovering/Resolving]
  - Blood pressure decreased [Unknown]
  - Bradycardia [Recovering/Resolving]
  - Shock [Recovered/Resolved with Sequelae]

NARRATIVE: CASE EVENT DATE: 20180521
